FAERS Safety Report 4374011-9 (Version None)
Quarter: 2004Q2

REPORT INFORMATION
  Report Type: 
  Country: None (occurrence: None)
  Receive Date: 20040601
  Receipt Date: 20040316
  Transmission Date: 20050107
  Serious: No
  Sender: FDA-Public Use
  Company Number: MPS1-10184

PATIENT
  Age: 9 Year
  Sex: Male

DRUGS (3)
  1. ALDURAZYME [Suspect]
     Dosage: 14.5 MG QWK IV
     Route: 042
     Dates: start: 20040210
  2. DIPHENHYDRAMINE HCL [Concomitant]
  3. ACETAMINOPHEN [Concomitant]

REACTIONS (3)
  - COUGH [None]
  - DECREASED APPETITE [None]
  - PHARYNGOLARYNGEAL PAIN [None]
